FAERS Safety Report 8463121-2 (Version None)
Quarter: 2012Q2

REPORT INFORMATION
  Report Type: 
  Country: None (occurrence: None)
  Receive Date: 20120625
  Receipt Date: 20120614
  Transmission Date: 20120825
  Serious: Yes (Hospitalization)
  Sender: FDA-Public Use
  Company Number: US-ASTRAZENECA-2012SE41102

PATIENT
  Age: 27105 Day
  Sex: Male

DRUGS (8)
  1. METOPROLOL TARTRATE [Concomitant]
     Indication: HYPERTENSION
     Route: 048
  2. PLAVIX [Concomitant]
     Indication: CORONARY ARTERY DISEASE
     Route: 048
  3. LISINOPRIL [Concomitant]
     Indication: HYPERTENSION
     Route: 048
  4. ASPIRIN [Concomitant]
     Route: 048
  5. EVEROLIMUS [Concomitant]
  6. CRESTOR [Concomitant]
     Indication: DYSLIPIDAEMIA
     Route: 048
  7. AZD6140 [Suspect]
     Indication: CORONARY ARTERY DISEASE
     Route: 048
     Dates: start: 20120517, end: 20120609
  8. SUBLINGUAL NTG [Concomitant]
     Indication: ANGINA PECTORIS
     Route: 060

REACTIONS (2)
  - GASTROENTERITIS [None]
  - THROMBOCYTOPENIA [None]
